FAERS Safety Report 6674089-3 (Version None)
Quarter: 2010Q2

REPORT INFORMATION
  Report Type: 
  Country: None (occurrence: None)
  Receive Date: 20100407
  Receipt Date: 20100323
  Transmission Date: 20101027
  Serious: Yes (Hospitalization)
  Sender: FDA-Public Use
  Company Number: 005986

PATIENT
  Sex: Female

DRUGS (8)
  1. CERTOLIZUMAB PEGOL (CDP870) [Suspect]
     Indication: RHEUMATOID ARTHRITIS
     Dosage: 200 MG 1X/2 WEEKS, SUBCUTANEOUS
     Route: 058
     Dates: start: 20091203
  2. CELECOXIB [Concomitant]
  3. ISONIAZID [Concomitant]
  4. PYRIDOXAL PHOSPHATE [Concomitant]
  5. PREDNISOLONE [Concomitant]
  6. VALACYCLOVIR [Concomitant]
  7. SALAZOSULFAPYRIDINE [Concomitant]
  8. METHOTREXATE [Concomitant]

REACTIONS (10)
  - BILE DUCT STONE [None]
  - CHOLANGITIS [None]
  - CHOLECYSTITIS [None]
  - HAEMORRHAGE [None]
  - MASS [None]
  - MOUTH ULCERATION [None]
  - PANCREATITIS ACUTE [None]
  - PERITONITIS [None]
  - RHEUMATOID ARTHRITIS [None]
  - VULVAL ULCERATION [None]
